FAERS Safety Report 6378987-X (Version None)
Quarter: 2009Q3

REPORT INFORMATION
  Report Type: 
  Country: None (occurrence: None)
  Receive Date: 20090928
  Receipt Date: 20090918
  Transmission Date: 20100115
  Serious: Yes (Other)
  Sender: FDA-Public Use
  Company Number: PHHY2009TR40192

PATIENT
  Age: 52 Year
  Sex: Male

DRUGS (1)
  1. ZOLEDRONIC ACID [Suspect]
     Indication: MULTIPLE MYELOMA
     Dosage: 4 MG, UNK
     Route: 042

REACTIONS (10)
  - DYSGEUSIA [None]
  - IMPAIRED HEALING [None]
  - INFECTION [None]
  - OPEN WOUND [None]
  - OSTEONECROSIS [None]
  - PAIN [None]
  - PURULENT DISCHARGE [None]
  - SWELLING [None]
  - TOOTH EXTRACTION [None]
  - TRISMUS [None]
